FAERS Safety Report 11191996 (Version 1)
Quarter: 2015Q2

REPORT INFORMATION
  Report Type: Spontaneous
  Country: SI (occurrence: None)
  Receive Date: 20150612
  Receipt Date: 20150612
  Transmission Date: 20150821
  Serious: Yes (Other)
  Sender: FDA-Public Use
  Company Number: FK201502624

PATIENT
  Age: 46 Year
  Sex: Male
  Weight: 65 kg

DRUGS (4)
  1. ASPIRIN PROTECT (ACETYLSALICYLIC ACID) [Concomitant]
  2. FENTANYL (FENTANYL) [Concomitant]
     Active Substance: FENTANYL
  3. CONCOR (BISOPROLOL FUMARATE) [Concomitant]
  4. PROPOFOL 1% MCT FRESENIUS (PROPOFOL) (PROPOFOL) [Suspect]
     Active Substance: PROPOFOL
     Indication: GENERAL ANAESTHESIA
     Dosage: 110 ML, 1 IN 1 D, TOTAL
     Route: 040

REACTIONS (3)
  - Opisthotonus [None]
  - Muscle spasms [None]
  - Trismus [None]
